FAERS Safety Report 18579799 (Version 2)
Quarter: 2020Q4

REPORT INFORMATION
  Report Type: Spontaneous
  Country: US (occurrence: US)
  Receive Date: 20201204
  Receipt Date: 20201211
  Transmission Date: 20210114
  Serious: No
  Sender: FDA-Public Use
  Company Number: US-BIOGEN-2020BI00949948

PATIENT
  Sex: Male

DRUGS (1)
  1. TECFIDERA [Suspect]
     Active Substance: DIMETHYL FUMARATE
     Indication: MULTIPLE SCLEROSIS
     Route: 065
     Dates: start: 20141029

REACTIONS (5)
  - Multiple sclerosis [Unknown]
  - Gastric disorder [Unknown]
  - Pancreatic disorder [Unknown]
  - Malaise [Unknown]
  - Confusional state [Unknown]
